FAERS Safety Report 6475361-2 (Version None)
Quarter: 2009Q4

REPORT INFORMATION
  Report Type: 
  Country: None (occurrence: None)
  Receive Date: 20091204
  Receipt Date: 20091126
  Transmission Date: 20100525
  Serious: Yes (Other)
  Sender: FDA-Public Use
  Company Number: TR-JNJFOC-20091200057

PATIENT
  Age: 48 Year
  Sex: Female

DRUGS (3)
  1. PALIPERIDON [Suspect]
     Indication: PARANOIA
     Route: 048
  2. OLANZAPINE [Suspect]
  3. OLANZAPINE [Suspect]
     Indication: PARANOIA

REACTIONS (2)
  - PARKINSONISM [None]
  - WEIGHT INCREASED [None]
